FAERS Safety Report 5685110-3 (Version None)
Quarter: 2008Q1

REPORT INFORMATION
  Report Type: 
  Country: None (occurrence: None)
  Receive Date: 20080328
  Receipt Date: 20080305
  Transmission Date: 20080703
  Serious: No
  Sender: FDA-Public Use
  Company Number: US-BOEHRINGER INGELHEIM GMBH, GERMANY-2007-BP-04293BP

PATIENT
  Age: 74 Year
  Sex: Female

DRUGS (2)
  1. SPIRIVA [Suspect]
     Indication: EMPHYSEMA
     Route: 055
     Dates: start: 20050101
  2. LEVAQUIN [Suspect]

REACTIONS (6)
  - DYSPNOEA [None]
  - DYSURIA [None]
  - EYE SWELLING [None]
  - RASH [None]
  - URINARY TRACT INFECTION [None]
  - URTICARIA [None]
